FAERS Safety Report 5293355-X (Version None)
Quarter: 2007Q2

REPORT INFORMATION
  Report Type: 
  Country: None (occurrence: None)
  Receive Date: 20070411
  Receipt Date: 20070402
  Transmission Date: 20071010
  Serious: Yes (Other)
  Sender: FDA-Public Use
  Company Number: GB-MERCK-0601GBR00139

PATIENT
  Age: 68 Year
  Sex: Male

DRUGS (1)
  1. ZOCOR [Suspect]
     Indication: BLOOD CHOLESTEROL INCREASED
     Route: 048
     Dates: end: 20051101

REACTIONS (2)
  - BLOOD BILIRUBIN ABNORMAL [None]
  - PLATELET COUNT DECREASED [None]
